FAERS Safety Report 10513991 (Version 1)
Quarter: 2014Q4

REPORT INFORMATION
  Report Type: Report from Study
  Country: ES (occurrence: ES)
  Receive Date: 20141013
  Receipt Date: 20141013
  Transmission Date: 20150528
  Serious: Yes (Hospitalization, Other)
  Sender: FDA-Public Use
  Company Number: ES-ABBVIE-14P-144-1292232-00

PATIENT
  Age: 52 Year
  Sex: Male

DRUGS (10)
  1. ALDACTONE [Suspect]
     Active Substance: SPIRONOLACTONE
     Indication: PRODUCT USED FOR UNKNOWN INDICATION
     Route: 065
  2. NORFLOXACINE [Concomitant]
     Active Substance: NORFLOXACIN
     Indication: PRODUCT USED FOR UNKNOWN INDICATION
  3. FUROSEMIDA [Concomitant]
     Active Substance: FUROSEMIDE
     Indication: PRODUCT USED FOR UNKNOWN INDICATION
  4. HUMIRA [Suspect]
     Active Substance: ADALIMUMAB
     Indication: PSORIASIS
     Route: 065
     Dates: start: 20100810
  5. AMOXICILLIN CLAVULANIC ACID [Suspect]
     Active Substance: AMOXICILLIN\CLAVULANIC ACID
     Indication: ESCHERICHIA URINARY TRACT INFECTION
     Route: 065
     Dates: start: 201306
  6. BETA BLOCKING AGENTS [Concomitant]
     Active Substance: UNSPECIFIED INGREDIENT
     Indication: VARICES OESOPHAGEAL
  7. SUMIAL [Concomitant]
     Active Substance: PROPRANOLOL HYDROCHLORIDE
     Indication: PRODUCT USED FOR UNKNOWN INDICATION
  8. AMOXICILLIN CLAVULANIC ACID [Suspect]
     Active Substance: AMOXICILLIN\CLAVULANIC ACID
     Indication: STREPTOCOCCAL URINARY TRACT INFECTION
  9. AMOXICILLIN CLAVULANIC ACID [Suspect]
     Active Substance: AMOXICILLIN\CLAVULANIC ACID
     Indication: MYCOBACTERIUM TUBERCULOSIS COMPLEX TEST POSITIVE
  10. LACTITOL [Suspect]
     Active Substance: LACTITOL
     Indication: PRODUCT USED FOR UNKNOWN INDICATION
     Route: 048

REACTIONS (15)
  - Prostatic abscess [Unknown]
  - Bradycardia [Unknown]
  - Bladder spasm [Unknown]
  - Intervertebral discitis [Unknown]
  - Streptococcal urinary tract infection [Unknown]
  - Feeling hot [Unknown]
  - Urethral stenosis [Unknown]
  - Diarrhoea [Unknown]
  - Acute kidney injury [Unknown]
  - Atrioventricular block first degree [Unknown]
  - Back pain [Unknown]
  - Adrenal insufficiency [Unknown]
  - Pancytopenia [Unknown]
  - Hepatic failure [Unknown]
  - Escherichia urinary tract infection [Unknown]

NARRATIVE: CASE EVENT DATE: 2013
